FAERS Safety Report 7802642-X (Version None)
Quarter: 2011Q4

REPORT INFORMATION
  Report Type: 
  Country: None (occurrence: None)
  Receive Date: 20111005
  Receipt Date: 20110920
  Transmission Date: 20120403
  Serious: Yes (Other)
  Sender: FDA-Public Use
  Company Number: DSA_47725_2011

PATIENT
  Age: 67 Year
  Sex: Female

DRUGS (1)
  1. ENALAPRIL MALEATE [Suspect]
     Indication: PRODUCT USED FOR UNKNOWN INDICATION
     Dosage: 5 MG, QD, ORAL
     Route: 048

REACTIONS (2)
  - OCULOMUCOCUTANEOUS SYNDROME [None]
  - LIVER DISORDER [None]
